FAERS Safety Report 20179471 (Version 2)
Quarter: 2021Q4

REPORT INFORMATION
  Report Type: Spontaneous
  Country: CN (occurrence: CN)
  Receive Date: 20211214
  Receipt Date: 20211221
  Transmission Date: 20220303
  Serious: Yes (Other)
  Sender: FDA-Public Use
  Company Number: CN-SA-2021SA411625

PATIENT
  Age: 13 Year
  Sex: Female
  Weight: 44.8 kg

DRUGS (20)
  1. METHYLPREDNISOLONE [Suspect]
     Active Substance: METHYLPREDNISOLONE
     Indication: Antiinflammatory therapy
     Dosage: 40 MG, ST
     Route: 041
     Dates: start: 20200326, end: 20200326
  2. METHYLPREDNISOLONE [Suspect]
     Active Substance: METHYLPREDNISOLONE
     Indication: Immunosuppressant drug therapy
     Dosage: 25 MG, Q12H
     Route: 041
     Dates: start: 20200327, end: 20200401
  3. METHYLPREDNISOLONE [Suspect]
     Active Substance: METHYLPREDNISOLONE
     Indication: Burkitt^s lymphoma
     Dosage: 33 MG, Q12H
     Route: 041
     Dates: start: 20200401, end: 20200407
  4. VINCRISTINE SULFATE [Suspect]
     Active Substance: VINCRISTINE SULFATE
     Indication: Burkitt^s lymphoma
     Dosage: 2 MG, QD
     Route: 042
     Dates: start: 20210328, end: 20210328
  5. VINCRISTINE SULFATE [Suspect]
     Active Substance: VINCRISTINE SULFATE
     Dosage: 2 MG, QD
     Route: 042
     Dates: start: 20200401, end: 20200401
  6. CYCLOPHOSPHAMIDE [Suspect]
     Active Substance: CYCLOPHOSPHAMIDE
     Indication: Burkitt^s lymphoma
     Dosage: 0.41 G, QD
     Route: 041
     Dates: start: 20200330, end: 20200330
  7. CYCLOPHOSPHAMIDE [Suspect]
     Active Substance: CYCLOPHOSPHAMIDE
     Dosage: 0.274 G, QD
     Route: 041
     Dates: start: 20200402, end: 20200404
  8. CYCLOPHOSPHAMIDE [Suspect]
     Active Substance: CYCLOPHOSPHAMIDE
     Dosage: 1.09 G, QD
     Route: 041
     Dates: start: 20200401, end: 20200401
  9. CYTARABINE [Suspect]
     Active Substance: CYTARABINE
     Indication: Burkitt^s lymphoma
     Dosage: 1360 MG, Q12H
     Route: 041
     Dates: start: 20200404, end: 20200404
  10. DOXORUBICIN [Suspect]
     Active Substance: DOXORUBICIN
     Indication: Burkitt^s lymphoma
     Dosage: 27.2 MG, QD
     Route: 041
     Dates: start: 20200402, end: 20200403
  11. RASBURICASE [Concomitant]
     Active Substance: RASBURICASE
     Indication: Blood uric acid increased
     Dosage: UNK
     Dates: start: 20200327, end: 20200327
  12. RASBURICASE [Concomitant]
     Active Substance: RASBURICASE
     Dosage: 9 MG, QD
     Route: 041
     Dates: start: 20200328, end: 20200330
  13. FUROSEMIDE [Concomitant]
     Active Substance: FUROSEMIDE
     Indication: Polyuria
     Dosage: 20 MG, Q8H
     Route: 042
     Dates: start: 20200326
  14. ALLOPURINOL [Concomitant]
     Active Substance: ALLOPURINOL
     Indication: Blood uric acid increased
     Dosage: 250 MG, QD
     Route: 048
     Dates: start: 20200326
  15. ONDANSETRON [Concomitant]
     Active Substance: ONDANSETRON
     Indication: Prophylaxis of nausea and vomiting
     Dosage: 8 MG, QD
     Route: 042
     Dates: start: 20200330
  16. ONDANSETRON [Concomitant]
     Active Substance: ONDANSETRON
     Dosage: 6 MG, Q12H
     Route: 042
     Dates: start: 20200401, end: 20200405
  17. DEXTROSE [Concomitant]
     Active Substance: DEXTROSE
     Indication: Prophylaxis
     Dosage: 1000 ML
     Dates: start: 20200328, end: 20200330
  18. SODIUM CHLORIDE [Concomitant]
     Active Substance: SODIUM CHLORIDE
     Indication: Prophylaxis
     Dosage: 20 ML
     Dates: start: 20200328, end: 20200330
  19. SODIUM BICARBONATE [Concomitant]
     Active Substance: SODIUM BICARBONATE
     Indication: Prophylaxis
     Dosage: 30 ML
     Route: 041
     Dates: start: 20200328, end: 20200330
  20. PEGYLATED RECOMBINANT HUMAN GRANULOCYTE COLONY STIMULATING FACTOR [Concomitant]
     Dosage: 3 MG INJECTED (24-48 H AFTER THE END OF CHEMOTHERAPY).
     Route: 058
     Dates: start: 20200406

REACTIONS (4)
  - Leukopenia [Unknown]
  - Neutropenia [Unknown]
  - Thrombocytopenia [Unknown]
  - Stomatitis [Unknown]

NARRATIVE: CASE EVENT DATE: 20200413
